FAERS Safety Report 8927780 (Version 2)
Quarter: 2014Q2

REPORT INFORMATION
  Report Type: Spontaneous
  Country: US (occurrence: US)
  Receive Date: 20121127
  Receipt Date: 20140414
  Transmission Date: 20141212
  Serious: Yes (Life-Threatening, Hospitalization, Disabling)
  Sender: FDA-Public Use
  Company Number: US-BAYER-2012-123929

PATIENT
  Age: 17 Year
  Sex: Female
  Weight: 73.47 kg

DRUGS (15)
  1. YAZ [Suspect]
     Dosage: UNK
     Dates: start: 201203
  2. YASMIN [Suspect]
  3. OCELLA [Suspect]
  4. GIANVI [Suspect]
  5. BEYAZ [Suspect]
  6. SAFYRAL [Suspect]
  7. ZARAH [Suspect]
  8. BACTRIM [Concomitant]
     Indication: PNEUMONIA
  9. ROCEPHIN [Concomitant]
     Indication: PNEUMONIA
     Route: 030
  10. IMPLANON [Concomitant]
  11. BACTRIM DS [Concomitant]
     Dosage: UNK
     Dates: start: 20120504
  12. DECADRON [DEXAMETHASONE] [Concomitant]
     Dosage: 10 MG, UNK
     Route: 030
     Dates: start: 20120504
  13. MEDROL [METHYLPREDNISOLONE] [Concomitant]
     Dosage: 4 MG, DOSE PACK
     Route: 048
     Dates: start: 20120504
  14. TRAMADOL [Concomitant]
     Dosage: 50 MG, EVERY 4-6 HOURS AS NEEDED
     Route: 048
     Dates: start: 20120504
  15. CEPHALEXIN [Concomitant]
     Dosage: 500 MG, 2 TABLETS TWICE A DAY
     Route: 048
     Dates: start: 20120504

REACTIONS (8)
  - Pulmonary embolism [None]
  - Injury [None]
  - Pain [None]
  - General physical health deterioration [None]
  - Pain [None]
  - Anxiety [None]
  - Anhedonia [None]
  - Emotional distress [None]
